FAERS Safety Report 12474827 (Version 2)
Quarter: 2016Q2

REPORT INFORMATION
  Report Type: Spontaneous
  Country: US (occurrence: US)
  Receive Date: 20160617
  Receipt Date: 20160623
  Transmission Date: 20160815
  Serious: No
  Sender: FDA-Public Use
  Company Number: US-HORIZON-PEN-0264-2016

PATIENT
  Age: 75 Year
  Sex: Female

DRUGS (12)
  1. LOSARTAN. [Concomitant]
     Active Substance: LOSARTAN
  2. TRIAMTERENE. [Concomitant]
     Active Substance: TRIAMTERENE
  3. NORVASC [Concomitant]
     Active Substance: AMLODIPINE BESYLATE
  4. HCTZ [Concomitant]
     Active Substance: HYDROCHLOROTHIAZIDE
  5. SYNTHROID [Concomitant]
     Active Substance: LEVOTHYROXINE SODIUM
  6. PENNSAID [Suspect]
     Active Substance: DICLOFENAC SODIUM
     Indication: ARTHRALGIA
     Dosage: 2 PUMPS TWICE A DAY
     Dates: start: 20160603, end: 20160610
  7. CARVEDILOL. [Concomitant]
     Active Substance: CARVEDILOL
  8. HYDRALAZINE [Concomitant]
     Active Substance: HYDRALAZINE HYDROCHLORIDE
  9. CALCIUM [Concomitant]
     Active Substance: CALCIUM
  10. PROTONIX [Concomitant]
     Active Substance: PANTOPRAZOLE SODIUM
  11. ASPIRIN. [Concomitant]
     Active Substance: ASPIRIN
  12. POTASSIUM [Concomitant]
     Active Substance: POTASSIUM

REACTIONS (5)
  - Dizziness [Recovered/Resolved]
  - Dysphonia [Recovered/Resolved]
  - Balance disorder [Recovered/Resolved]
  - Nausea [Recovered/Resolved]
  - Off label use [Recovered/Resolved]
